FAERS Safety Report 6401190-1 (Version None)
Quarter: 2009Q4

REPORT INFORMATION
  Report Type: 
  Country: None (occurrence: None)
  Receive Date: 20091015
  Receipt Date: 20091007
  Transmission Date: 20100525
  Serious: Yes (Hospitalization)
  Sender: FDA-Public Use
  Company Number: US-ROCHE-657316

PATIENT
  Sex: Female

DRUGS (3)
  1. BONIVA [Suspect]
     Indication: DRUG USE FOR UNKNOWN INDICATION
     Dosage: FORM: PILL; DOSE REPORTED AS 150
     Route: 048
     Dates: start: 20070311
  2. BONIVA [Suspect]
     Route: 048
     Dates: start: 20090402
  3. BONIVA [Suspect]
     Route: 048
     Dates: end: 20090901

REACTIONS (5)
  - ASTHENIA [None]
  - CHEST PAIN [None]
  - INFLUENZA LIKE ILLNESS [None]
  - OESOPHAGEAL DISORDER [None]
  - PAIN [None]
